FAERS Safety Report 8385051-7 (Version None)
Quarter: 2012Q2

REPORT INFORMATION
  Report Type: 
  Country: None (occurrence: None)
  Receive Date: 20120524
  Receipt Date: 20120521
  Transmission Date: 20120825
  Serious: Yes (Disabling)
  Sender: FDA-Public Use
  Company Number: US-MERCK-1205USA04143

PATIENT
  Sex: Female

DRUGS (1)
  1. SINEMET CR [Suspect]
     Route: 048

REACTIONS (3)
  - URTICARIA [None]
  - RASH [None]
  - PARKINSON'S DISEASE [None]
